FAERS Safety Report 14599032 (Version 2)
Quarter: 2018Q1

REPORT INFORMATION
  Report Type: Spontaneous
  Country: IT (occurrence: IT)
  Receive Date: 20180305
  Receipt Date: 20180305
  Transmission Date: 20180509
  Serious: Yes (Hospitalization)
  Sender: FDA-Public Use
  Company Number: IT-CONCORDIA PHARMACEUTICALS INC.-E2B_00010274

PATIENT
  Age: 97 Year
  Sex: Male

DRUGS (8)
  1. TAPAZOLE [Concomitant]
     Active Substance: METHIMAZOLE
  2. XARELTO [Concomitant]
     Active Substance: RIVAROXABAN
  3. LANOXIN [Suspect]
     Active Substance: DIGOXIN
     Indication: CARDIAC FAILURE
     Route: 048
     Dates: start: 20170101, end: 20170601
  4. TAREG [Concomitant]
     Active Substance: VALSARTAN
  5. LUCEN [Concomitant]
     Active Substance: ESOMEPRAZOLE
  6. EFEXOR [Concomitant]
     Active Substance: VENLAFAXINE HYDROCHLORIDE
  7. FERRO-GRAD [Concomitant]
     Active Substance: FERROUS SULFATE
  8. GAVISCON [Concomitant]
     Active Substance: ALUMINUM HYDROXIDE\MAGNESIUM CARBONATE

REACTIONS (2)
  - Dehydration [Unknown]
  - Cardioactive drug level increased [Unknown]

NARRATIVE: CASE EVENT DATE: 20170601
